FAERS Safety Report 14955533 (Version 1)
Quarter: 2018Q2

REPORT INFORMATION
  Report Type: Report from Study
  Country: US (occurrence: US)
  Receive Date: 20180531
  Receipt Date: 20180531
  Transmission Date: 20180711
  Serious: Yes (Hospitalization, Other)
  Sender: FDA-Public Use
  Company Number: US-SA-2018SA141263

PATIENT
  Age: 67 Year
  Sex: Male

DRUGS (2)
  1. INSULIN GLARGINE [Suspect]
     Active Substance: INSULIN GLARGINE
  2. TOUJEO [Suspect]
     Active Substance: INSULIN GLARGINE
     Dosage: 140 U, QD
     Route: 058
     Dates: start: 2016

REACTIONS (2)
  - Gastrointestinal infection [Not Recovered/Not Resolved]
  - Pruritus [Recovered/Resolved]
